FAERS Safety Report 7672351-9 (Version None)
Quarter: 2011Q3

REPORT INFORMATION
  Report Type: 
  Country: None (occurrence: None)
  Receive Date: 20110804
  Receipt Date: 20110721
  Transmission Date: 20111222
  Serious: Yes (Death)
  Sender: FDA-Public Use
  Company Number: 1000022264

PATIENT
  Age: 90 Year
  Sex: Male

DRUGS (7)
  1. MEMANTINE [Suspect]
     Indication: DEMENTIA ALZHEIMER'S TYPE
     Dosage: 20 MG (20 MG, 1 IN 1 D), ORAL
     Route: 048
     Dates: start: 20110710
  2. METHYCOBAL (MECOBALAMIN) [Concomitant]
  3. ARICEPT [Concomitant]
  4. MEMANTINE [Suspect]
     Indication: DEMENTIA
     Dosage: 5, 10, 15 MG (5 MG, 1 IN 1 D), ORAL
     Route: 048
     Dates: start: 20110703, end: 20110709
  5. MEMANTINE [Suspect]
     Indication: DEMENTIA
     Dosage: 5, 10, 15 MG (5 MG, 1 IN 1 D), ORAL
     Route: 048
     Dates: start: 20110618, end: 20110624
  6. MEMANTINE [Suspect]
     Indication: DEMENTIA
     Dosage: 5, 10, 15 MG (5 MG, 1 IN 1 D), ORAL
     Route: 048
     Dates: start: 20110625, end: 20110702
  7. STAYBLA (IMIDAFENACIN) [Concomitant]

REACTIONS (8)
  - VENTRICULAR EXTRASYSTOLES [None]
  - SUBARACHNOID HAEMORRHAGE [None]
  - BLOOD ALKALINE PHOSPHATASE INCREASED [None]
  - HAEMOGLOBIN DECREASED [None]
  - LOSS OF CONSCIOUSNESS [None]
  - OEDEMA PERIPHERAL [None]
  - BLOOD PRESSURE SYSTOLIC INCREASED [None]
  - ALANINE AMINOTRANSFERASE DECREASED [None]
